FAERS Safety Report 18503155 (Version 2)
Quarter: 2020Q4

REPORT INFORMATION
  Report Type: Report from Study
  Country: CA (occurrence: CA)
  Receive Date: 20201113
  Receipt Date: 20201123
  Transmission Date: 20210114
  Serious: Yes (Hospitalization, Other)
  Sender: FDA-Public Use
  Company Number: CA-BAYER-2020-058709

PATIENT
  Age: 78 Year
  Sex: Female

DRUGS (3)
  1. STIVARGA [Suspect]
     Active Substance: REGORAFENIB
     Indication: FIBROSARCOMA METASTATIC
     Dosage: UNK
     Dates: start: 20200525, end: 20200531
  2. STIVARGA [Suspect]
     Active Substance: REGORAFENIB
     Indication: METASTASIS
     Dosage: UNK
     Dates: start: 2020
  3. STIVARGA [Suspect]
     Active Substance: REGORAFENIB
     Indication: METASTASIS
     Dosage: 80 MG, QD
     Dates: start: 20200416, end: 202004

REACTIONS (21)
  - Product use in unapproved indication [Unknown]
  - Gastrointestinal haemorrhage [Unknown]
  - Blood iron decreased [Unknown]
  - Off label use [Unknown]
  - White blood cell count decreased [None]
  - Pain [Unknown]
  - Fatigue [Unknown]
  - Alopecia [Unknown]
  - Pyrexia [Unknown]
  - Feeling hot [Unknown]
  - Body temperature fluctuation [Unknown]
  - Pyrexia [None]
  - Dysphonia [Not Recovered/Not Resolved]
  - Headache [Unknown]
  - Neutrophil count decreased [None]
  - Malaise [Unknown]
  - Insomnia [None]
  - Urinary tract infection [None]
  - Arthralgia [None]
  - Decreased appetite [Unknown]
  - Oral hyperaesthesia [None]

NARRATIVE: CASE EVENT DATE: 2020
